FAERS Safety Report 7782874-X (Version None)
Quarter: 2011Q3

REPORT INFORMATION
  Report Type: 
  Country: None (occurrence: None)
  Receive Date: 20110928
  Receipt Date: 20110923
  Transmission Date: 20111222
  Serious: Yes (Other)
  Sender: FDA-Public Use
  Company Number: DE-ASTELLAS-2011EU006191

PATIENT
  Sex: Female
  Weight: 69 kg

DRUGS (3)
  1. NITRENDIPIN [Concomitant]
     Dosage: 20 MG, UID/QD
     Route: 048
  2. VESICARE [Suspect]
     Indication: URGE INCONTINENCE
     Dosage: 5 MG, UID/QD
     Route: 048
     Dates: start: 20110822, end: 20110830
  3. OLMESARTAN MEDOXOMIL [Concomitant]
     Dosage: UNK
     Route: 065

REACTIONS (4)
  - EYELID OEDEMA [None]
  - OEDEMA PERIPHERAL [None]
  - ARTHRALGIA [None]
  - JOINT SWELLING [None]
